FAERS Safety Report 8712502 (Version 2)
Quarter: 2012Q4

REPORT INFORMATION
  Report Type: 
  Country: US (occurrence: US)
  Receive Date: 20120808
  Receipt Date: 20121001
  Transmission Date: 20130627
  Serious: Yes (Death)
  Sender: FDA-Public Use
  Company Number: PHEH2012US015456

PATIENT
  Sex: Female
  Weight: 72.56 kg

DRUGS (1)
  1. RECLAST [Suspect]
     Route: 042

REACTIONS (1)
  - Haemorrhage intracranial [Fatal]
